FAERS Safety Report 7030774-5 (Version None)
Quarter: 2010Q4

REPORT INFORMATION
  Report Type: 
  Country: None (occurrence: None)
  Receive Date: 20101001
  Receipt Date: 20100923
  Transmission Date: 20110411
  Serious: Yes (Hospitalization)
  Sender: FDA-Public Use
  Company Number: 2010MA002957

PATIENT
  Age: 35 Year
  Sex: Male

DRUGS (3)
  1. GABAPENTIN [Suspect]
     Dosage: 300 MG;BID;PO
     Route: 048
     Dates: start: 20090904
  2. IMIPRAMINE HYDROCHLORIDE TABLETS [Concomitant]
  3. PREV MEDS [Concomitant]

REACTIONS (13)
  - CHILLS [None]
  - DIZZINESS [None]
  - FACIAL NEURALGIA [None]
  - HEADACHE [None]
  - HEMIPARESIS [None]
  - NAUSEA [None]
  - PERIPHERAL NERVE DECOMPRESSION [None]
  - RESTLESSNESS [None]
  - SENSORY LOSS [None]
  - SOMNOLENCE [None]
  - THERAPY REGIMEN CHANGED [None]
  - TREMOR [None]
  - VITAMIN D DEFICIENCY [None]
